FAERS Safety Report 9882312 (Version 1)
Quarter: 2014Q1

REPORT INFORMATION
  Report Type: Spontaneous
  Country: US (occurrence: US)
  Receive Date: 20140207
  Receipt Date: 20140207
  Transmission Date: 20141002
  Serious: Yes (Death)
  Sender: FDA-Public Use
  Company Number: US-GLAXOSMITHKLINE-A1058898A

PATIENT
  Age: 46 Year
  Sex: Female

DRUGS (6)
  1. AVANDIA [Suspect]
     Indication: TYPE 2 DIABETES MELLITUS
     Dosage: 8MG PER DAY
     Route: 048
     Dates: start: 2000, end: 20080219
  2. NOVOLOG [Concomitant]
  3. QUINAPRIL [Concomitant]
  4. AMLODIPINE [Concomitant]
  5. METFORMIN [Concomitant]
  6. PRILOSEC [Concomitant]

REACTIONS (5)
  - Myocardial infarction [Fatal]
  - Cerebrovascular accident [Unknown]
  - Malaise [Unknown]
  - Feeling abnormal [Unknown]
  - Sudden cardiac death [Fatal]
